FAERS Safety Report 5710830-1 (Version None)
Quarter: 2008Q2

REPORT INFORMATION
  Report Type: 
  Country: None (occurrence: None)
  Receive Date: 20080415
  Receipt Date: 20080331
  Transmission Date: 20081010
  Serious: Yes (Death, Hospitalization)
  Sender: FDA-Public Use
  Company Number: 2008US001043

PATIENT
  Age: 60 Year
  Sex: Male

DRUGS (10)
  1. AMBISOME [Suspect]
     Indication: BRONCHOPULMONARY ASPERGILLOSIS
     Dosage: 150 MG, UID/QD, IV NOS
     Route: 042
     Dates: start: 20080105, end: 20080118
  2. ALDACTONE [Concomitant]
  3. OMEPRAL [Concomitant]
  4. FUNGUARD (MICAFUNGIN) [Concomitant]
  5. MEROPEN (MEROPENEM) [Concomitant]
  6. GAMMAGARD [Concomitant]
  7. BROCIN-CODEINE (PRUNUS SEROTINA BARK) [Concomitant]
  8. MUCODYNE (CARBOCISTEINE) [Concomitant]
  9. BIOFERMIN R (STREPTOCOCCUS FAECALIS) [Concomitant]
  10. SULFAMETHOXAZOLE AND TRIMETHOPRIM [Concomitant]

REACTIONS (10)
  - BLOOD BILIRUBIN INCREASED [None]
  - BLOOD POTASSIUM DECREASED [None]
  - BLOOD URINE PRESENT [None]
  - CHEST PAIN [None]
  - HAEMATOCRIT DECREASED [None]
  - HAEMOGLOBIN DECREASED [None]
  - MASS [None]
  - PLATELET COUNT DECREASED [None]
  - PROTEIN URINE PRESENT [None]
  - RENAL IMPAIRMENT [None]
